FAERS Safety Report 7461674 (Version 4)
Quarter: 2017Q4

REPORT INFORMATION
  Report Type: Spontaneous
  Country: TR (occurrence: TR)
  Receive Date: 20100709
  Receipt Date: 20171010
  Transmission Date: 20180321
  Serious: Yes (Other)
  Sender: FDA-Public Use
  Company Number: TR-BAYER-201030955GPV

PATIENT
  Sex: Female

DRUGS (1)
  1. AVELOX [Suspect]
     Active Substance: MOXIFLOXACIN HYDROCHLORIDE
     Indication: EAR PAIN
     Route: 065
     Dates: start: 20100315, end: 20100320

REACTIONS (4)
  - Uveitis [Not Recovered/Not Resolved]
  - Iris transillumination defect [Not Recovered/Not Resolved]
  - Photophobia [Not Recovered/Not Resolved]
  - Mydriasis [Not Recovered/Not Resolved]

NARRATIVE: CASE EVENT DATE: 2010
